FAERS Safety Report 5291785-3 (Version None)
Quarter: 2007Q2

REPORT INFORMATION
  Report Type: 
  Country: None (occurrence: None)
  Receive Date: 20070410
  Receipt Date: 20070330
  Transmission Date: 20071010
  Serious: Yes (Hospitalization)
  Sender: FDA-Public Use
  Company Number: US-KINGPHARMUSA00001-K200601629

PATIENT

DRUGS (3)
  1. ALTACE [Suspect]
     Dosage: 300 MG, SINGLE
     Route: 048
  2. RANITIDINE [Suspect]
     Dosage: 4500 MG, SINGLE
     Route: 048
  3. SIMVASTATIN [Suspect]
     Dosage: 600 MG, SINGLE
     Route: 048

REACTIONS (4)
  - BLOOD PRESSURE DECREASED [None]
  - HAEMODYNAMIC INSTABILITY [None]
  - HYPOTENSION [None]
  - OVERDOSE [None]
